FAERS Safety Report 7042479-5 (Version None)
Quarter: 2010Q4

REPORT INFORMATION
  Report Type: 
  Country: None (occurrence: None)
  Receive Date: 20101013
  Receipt Date: 20100201
  Transmission Date: 20110411
  Serious: No
  Sender: FDA-Public Use
  Company Number: US-ASTRAZENECA-2010SE01810

PATIENT
  Age: 71 Year
  Sex: Female
  Weight: 67.1 kg

DRUGS (5)
  1. SYMBICORT [Suspect]
     Indication: ASTHMA
     Dosage: 160/4.5 MCG 2 PUFFS BID
     Route: 055
     Dates: start: 20100101
  2. SYMBICORT [Suspect]
     Dosage: 160/4.5 MCG 1 PUFF BID
     Route: 055
  3. LISINOPRIL [Concomitant]
     Indication: HYPERTENSION
  4. BONIVA [Concomitant]
  5. VITAMINS [Concomitant]

REACTIONS (4)
  - HYPOAESTHESIA [None]
  - PALPITATIONS [None]
  - PARAESTHESIA [None]
  - SLEEP DISORDER DUE TO GENERAL MEDICAL CONDITION, INSOMNIA TYPE [None]
